FAERS Safety Report 9203365 (Version 1)
Quarter: 2013Q2

REPORT INFORMATION
  Report Type: Spontaneous
  Country: US (occurrence: US)
  Receive Date: 20130402
  Receipt Date: 20130402
  Transmission Date: 20140414
  Serious: Yes (Hospitalization)
  Sender: FDA-Public Use
  Company Number: US-009507513-1304USA000474

PATIENT
  Age: 37 Year
  Sex: Female

DRUGS (1)
  1. CRIXIVAN [Suspect]
     Indication: HIV INFECTION
     Dosage: 800 MG EVERY 12 HOURS
     Route: 048

REACTIONS (1)
  - Dysphagia [Not Recovered/Not Resolved]
